FAERS Safety Report 8609883-2 (Version None)
Quarter: 2012Q3

REPORT INFORMATION
  Report Type: 
  Country: None (occurrence: None)
  Receive Date: 20120821
  Receipt Date: 20120809
  Transmission Date: 20120928
  Serious: Yes (Other)
  Sender: FDA-Public Use
  Company Number: SE-ELI_LILLY_AND_COMPANY-SE201208003247

PATIENT
  Sex: Male

DRUGS (4)
  1. BYDUREON [Suspect]
     Indication: TYPE 2 DIABETES MELLITUS
     Dosage: 2 MG, WEEKLY (1/W)
     Route: 058
     Dates: start: 20120702
  2. FELODIPINE [Concomitant]
     Indication: BLOOD PRESSURE
  3. LANTUS [Concomitant]
     Indication: DIABETES MELLITUS
     Dosage: 48 U, EACH EVENING
  4. ANTIHYPERTENSIVES [Concomitant]

REACTIONS (4)
  - PHARYNGEAL OEDEMA [None]
  - DIARRHOEA [None]
  - VOMITING [None]
  - DYSPHAGIA [None]
